FAERS Safety Report 16025849 (Version 1)
Quarter: 2019Q1

REPORT INFORMATION
  Report Type: Spontaneous
  Country: MX (occurrence: MX)
  Receive Date: 20190302
  Receipt Date: 20190302
  Transmission Date: 20190418
  Serious: Yes (Hospitalization)
  Sender: FDA-Public Use
  Company Number: MX-B.I. PHARMACEUTICALS,INC./RIDGEFIELD-2019-BI-009109

PATIENT
  Sex: Male

DRUGS (1)
  1. COMBIVENT [Suspect]
     Active Substance: ALBUTEROL SULFATE\IPRATROPIUM BROMIDE
     Indication: BRONCHIOLITIS
     Dosage: FORM OF ADMIN.: RESPIMAT INHALATION SOLUTION
     Route: 055
     Dates: start: 20190226

REACTIONS (3)
  - Abnormal sensation in eye [Unknown]
  - Syncope [Unknown]
  - Pneumonia [Unknown]

NARRATIVE: CASE EVENT DATE: 20190226
